FAERS Safety Report 8563443-0 (Version None)
Quarter: 2012Q3

REPORT INFORMATION
  Report Type: 
  Country: None (occurrence: None)
  Receive Date: 20120802
  Receipt Date: 20101229
  Transmission Date: 20120928
  Serious: Yes (Other)
  Sender: FDA-Public Use
  Company Number: US-BAYER-201010676NA

PATIENT
  Age: 17 Year
  Sex: Female

DRUGS (7)
  1. FAMOTIDINE [Concomitant]
  2. YASMIN [Suspect]
     Indication: CONTRACEPTION
     Dosage: 1 DF (DAILY DOSE), QD, ORAL
     Route: 048
     Dates: start: 20040512, end: 20080701
  3. IBUPROFEN [Concomitant]
     Dosage: UNK
     Dates: start: 20050101, end: 20080101
  4. TRAMADOL HYDROCHLORIDE AND ACETAMINOPHEN [Concomitant]
     Dosage: UNK
  5. DROSPIRENONE AND ETHINYL ESTRADIOL [Suspect]
     Indication: CONTRACEPTION
     Dosage: UNK
     Dates: start: 20080723, end: 20090901
  6. NAPROXEN [Concomitant]
     Dosage: UNK
     Dates: start: 20050101, end: 20080101
  7. MEPROZINE [Concomitant]

REACTIONS (6)
  - CHOLECYSTITIS CHRONIC [None]
  - NAUSEA [None]
  - ABDOMINAL PAIN UPPER [None]
  - VOMITING [None]
  - CHOLELITHIASIS [None]
  - GALLBLADDER CHOLESTEROLOSIS [None]
